FAERS Safety Report 5907427-7 (Version None)
Quarter: 2008Q4

REPORT INFORMATION
  Report Type: 
  Country: None (occurrence: None)
  Receive Date: 20081003
  Receipt Date: 20080926
  Transmission Date: 20090506
  Serious: Yes (Hospitalization)
  Sender: FDA-Public Use
  Company Number: A0750139A

PATIENT
  Age: 62 Year
  Sex: Male
  Weight: 81.8 kg

DRUGS (9)
  1. AVANDIA [Suspect]
     Indication: DIABETES MELLITUS
     Dosage: 8MG TWICE PER DAY
     Route: 048
     Dates: end: 20040728
  2. HYDROCHLOROTHIAZIDE [Concomitant]
  3. VIOXX [Concomitant]
  4. SIMVASTATIN [Concomitant]
  5. SULINDAC [Concomitant]
  6. LISINOPRIL [Concomitant]
  7. CLOPIDOGREL [Concomitant]
  8. FELODIPINE [Concomitant]
  9. TRAMADOL HCL [Concomitant]

REACTIONS (5)
  - ACUTE CORONARY SYNDROME [None]
  - BRAIN INJURY [None]
  - CARDIAC DISORDER [None]
  - CEREBROVASCULAR ACCIDENT [None]
  - MYOCARDIAL INFARCTION [None]
